FAERS Safety Report 21407462 (Version 1)
Quarter: 2022Q4

REPORT INFORMATION
  Report Type: Spontaneous
  Country: US (occurrence: US)
  Receive Date: 20221004
  Receipt Date: 20221004
  Transmission Date: 20230113
  Serious: No
  Sender: FDA-Public Use
  Company Number: US-drreddys-LIT/USA/22/0154681

PATIENT
  Age: 1 Year
  Sex: Female

DRUGS (3)
  1. BORTEZOMIB [Suspect]
     Active Substance: BORTEZOMIB
     Indication: Acute graft versus host disease in skin
     Dosage: 0.1 MG/M2MG TO 1.3/M2MG
  2. PREDNISOLONE [Concomitant]
     Active Substance: PREDNISOLONE
     Indication: Acute graft versus host disease in skin
  3. PREDNISOLONE [Concomitant]
     Active Substance: PREDNISOLONE
     Dosage: DOSE WAS REDUCED BELOW 1 MG/KG/DAY

REACTIONS (1)
  - Off label use [Unknown]
